FAERS Safety Report 6539624-4 (Version None)
Quarter: 2010Q1

REPORT INFORMATION
  Report Type: 
  Country: None (occurrence: None)
  Receive Date: 20100115
  Receipt Date: 20100106
  Transmission Date: 20100710
  Serious: Yes (Hospitalization, Other)
  Sender: FDA-Public Use
  Company Number: BR-ABBOTT-09P-020-0600101-00

PATIENT
  Sex: Female
  Weight: 52 kg

DRUGS (4)
  1. HUMIRA [Suspect]
     Indication: RHEUMATOID ARTHRITIS
     Route: 058
     Dates: start: 20080701
  2. ALGE RELAX FUERTE [Concomitant]
     Indication: PAIN
     Route: 048
  3. LEFLUNOMIDE [Concomitant]
     Indication: RHEUMATOID ARTHRITIS
     Route: 048
  4. LORAX [Concomitant]
     Indication: INSOMNIA
     Route: 048

REACTIONS (4)
  - ANXIETY [None]
  - GLAUCOMA [None]
  - ISCHAEMIA [None]
  - PAIN [None]
